FAERS Safety Report 6171742-5 (Version None)
Quarter: 2009Q2

REPORT INFORMATION
  Report Type: 
  Country: None (occurrence: None)
  Receive Date: 20090429
  Receipt Date: 20090421
  Transmission Date: 20091009
  Serious: Yes (Hospitalization)
  Sender: FDA-Public Use
  Company Number: AU-ASTRAZENECA-2009AP01924

PATIENT
  Age: 20 Year
  Sex: Male
  Weight: 70 kg

DRUGS (5)
  1. SEROQUEL [Suspect]
     Route: 048
  2. SEROQUEL [Suspect]
     Route: 055
     Dates: start: 20090312, end: 20090312
  3. DEXAMPHETAMINE [Suspect]
     Route: 048
  4. CELAPRAM [Concomitant]
     Route: 048
  5. CITALOPRAM [Concomitant]
     Route: 048

REACTIONS (2)
  - CONVULSION [None]
  - DRUG ABUSE [None]
